FAERS Safety Report 15736555 (Version 1)
Quarter: 2018Q4

REPORT INFORMATION
  Report Type: Spontaneous
  Country: US (occurrence: US)
  Receive Date: 20181204
  Receipt Date: 20181204
  Transmission Date: 20190205
  Serious: Yes (Hospitalization)
  Sender: FDA-Public Use
  Company Number: None

PATIENT
  Age: 42 Year
  Sex: Female

DRUGS (14)
  1. ACYCLOVIR 400MG [Concomitant]
     Active Substance: ACYCLOVIR
  2. FOLIC ACID 1MG [Concomitant]
  3. TRAZODONE [Concomitant]
     Active Substance: TRAZODONE HYDROCHLORIDE
  4. ZYRTEC [Concomitant]
     Active Substance: CETIRIZINE HYDROCHLORIDE
  5. DIPHENHYDRAM 25MG [Concomitant]
  6. MULTIVITAMIN [Concomitant]
     Active Substance: VITAMINS
  7. COLLAGEN [Concomitant]
     Active Substance: COLLAGEN
  8. DULOXETINE 60 [Concomitant]
  9. FISH OIL 1000MG [Concomitant]
  10. ENBREL [Suspect]
     Active Substance: ETANERCEPT
     Indication: RHEUMATOID ARTHRITIS
     Dosage: ?          OTHER FREQUENCY:ONCE WEEKLY;?
     Route: 058
  11. BIOTIN 300MCG [Concomitant]
  12. PSEUDOEPHDR 30MG [Concomitant]
  13. LEVOTHYROXIN 100MCG [Concomitant]
  14. SUPER B COMP [Concomitant]

REACTIONS (1)
  - Endoscopy [None]

NARRATIVE: CASE EVENT DATE: 20181203
